FAERS Safety Report 18000390 (Version 1)
Quarter: 2020Q3

REPORT INFORMATION
  Report Type: Spontaneous
  Country: US (occurrence: US)
  Receive Date: 20200709
  Receipt Date: 20200709
  Transmission Date: 20201103
  Serious: No
  Sender: FDA-Public Use
  Company Number: None

PATIENT
  Age: 60 Year
  Sex: Female
  Weight: 74.25 kg

DRUGS (18)
  1. TUMS [Concomitant]
     Active Substance: CALCIUM CARBONATE
  2. VITAMIN B1 [Concomitant]
     Active Substance: THIAMINE HYDROCHLORIDE
  3. OREGANO OIL [Concomitant]
  4. ZINC. [Concomitant]
     Active Substance: ZINC
  5. BACLOFEN. [Concomitant]
     Active Substance: BACLOFEN
  6. VITAMIN B6 [Concomitant]
     Active Substance: PYRIDOXINE HYDROCHLORIDE
  7. SINUS HEADACHE MEDICINE [Concomitant]
  8. XOPENEX INHALER [Concomitant]
  9. DIAZEPAM. [Concomitant]
     Active Substance: DIAZEPAM
  10. SAMBUCUS ELDERBERRY [Concomitant]
  11. BENENDRYL [Concomitant]
  12. GABAPENTIN. [Concomitant]
     Active Substance: GABAPENTIN
  13. MELOXICAM. [Concomitant]
     Active Substance: MELOXICAM
  14. VITAMIN B12 [Concomitant]
     Active Substance: CYANOCOBALAMIN
  15. MIRALAX [Concomitant]
     Active Substance: POLYETHYLENE GLYCOL 3350
  16. FLONASE ALLERGY RELIEF [Suspect]
     Active Substance: FLUTICASONE PROPIONATE
     Indication: HYPERSENSITIVITY
     Dosage: ?          QUANTITY:1 SPRAY(S);OTHER ROUTE:NASAL SPRAY?
     Dates: start: 20200620, end: 20200709
  17. VITAMIN D3 [Concomitant]
     Active Substance: CHOLECALCIFEROL
  18. TYLENOL [Concomitant]
     Active Substance: ACETAMINOPHEN

REACTIONS (7)
  - Palpitations [None]
  - Facial pain [None]
  - Candida infection [None]
  - Diarrhoea [None]
  - Product use complaint [None]
  - Headache [None]
  - Muscle spasms [None]

NARRATIVE: CASE EVENT DATE: 20200620
